FAERS Safety Report 9329487 (Version 1)
Quarter: 2013Q2

REPORT INFORMATION
  Report Type: Spontaneous
  Country: US (occurrence: None)
  Receive Date: 20130531
  Receipt Date: 20130531
  Transmission Date: 20140414
  Serious: Yes (Other)
  Sender: FDA-Public Use
  Company Number: 2013P1006260

PATIENT
  Age: 81 Year
  Sex: Male

DRUGS (1)
  1. BUPROPION [Suspect]
     Indication: FATIGUE

REACTIONS (2)
  - Hallucination, visual [None]
  - Hallucination, auditory [None]
